FAERS Safety Report 14410862 (Version 14)
Quarter: 2018Q3

REPORT INFORMATION
  Report Type: Spontaneous
  Country: CA (occurrence: CA)
  Receive Date: 20180119
  Receipt Date: 20180925
  Transmission Date: 20181010
  Serious: Yes (Other)
  Sender: FDA-Public Use
  Company Number: CA-CELLTRION INC.-2017CA011367

PATIENT

DRUGS (10)
  1. INFLECTRA [Suspect]
     Active Substance: INFLIXIMAB-DYYB
     Dosage: 365 MG, CYCLIC (EVERY 6 WEEKS)
     Route: 042
     Dates: start: 20180228
  2. INFLECTRA [Suspect]
     Active Substance: INFLIXIMAB-DYYB
     Dosage: 400 MG, EVERY 6 WEEKS
     Route: 042
     Dates: start: 20180730
  3. INFLECTRA [Suspect]
     Active Substance: INFLIXIMAB-DYYB
     Dosage: 365 MG, CYCLIC (EVERY 6 WEEKS)
     Route: 042
     Dates: start: 20180117
  4. IMURAN [Suspect]
     Active Substance: AZATHIOPRINE
     Indication: PRODUCT USED FOR UNKNOWN INDICATION
     Dosage: 3 TABLETS, ONCE A DAY
     Route: 048
     Dates: start: 201606
  5. INFLECTRA [Suspect]
     Active Substance: INFLIXIMAB-DYYB
     Indication: CROHN^S DISEASE
     Dosage: 365 MG, CYCLIC (EVERY 6 WEEKS)
     Route: 042
     Dates: start: 20170426, end: 20171122
  6. INFLECTRA [Suspect]
     Active Substance: INFLIXIMAB-DYYB
     Dosage: 400 MG, EVERY 6 WEEKS
     Route: 042
     Dates: start: 20180910
  7. INFLECTRA [Suspect]
     Active Substance: INFLIXIMAB-DYYB
     Dosage: 350 MG, CYCLIC (EVERY 8 WEEKS)
     Route: 042
     Dates: start: 20171122, end: 20171122
  8. INFLECTRA [Suspect]
     Active Substance: INFLIXIMAB-DYYB
     Dosage: 400 MG, EVERY 6 WEEKS
     Route: 042
     Dates: start: 20180523
  9. INFLECTRA [Suspect]
     Active Substance: INFLIXIMAB-DYYB
     Dosage: 365 MG, CYCLIC (EVERY 6 WEEKS)
     Route: 042
     Dates: start: 20180410, end: 20180410
  10. INFLECTRA [Suspect]
     Active Substance: INFLIXIMAB-DYYB
     Dosage: 400 MG, EVERY 6 WEEKS
     Route: 042
     Dates: start: 20180523, end: 20180704

REACTIONS (14)
  - Crohn^s disease [Unknown]
  - Product use issue [Unknown]
  - Diarrhoea [Unknown]
  - Erythema nodosum [Unknown]
  - Drug level decreased [Unknown]
  - Haematochezia [Recovered/Resolved]
  - Weight decreased [Unknown]
  - Off label use [Unknown]
  - Diarrhoea [Unknown]
  - Condition aggravated [Unknown]
  - Drug effect decreased [Unknown]
  - Weight increased [Recovering/Resolving]
  - Arthralgia [Unknown]
  - Drug effect incomplete [Unknown]

NARRATIVE: CASE EVENT DATE: 20171122
